FAERS Safety Report 10997628 (Version 1)
Quarter: 2015Q2

REPORT INFORMATION
  Report Type: Spontaneous
  Country: US (occurrence: None)
  Receive Date: 20150407
  Receipt Date: 20150407
  Transmission Date: 20150821
  Serious: Yes (Other)
  Sender: FDA-Public Use
  Company Number: None

PATIENT
  Age: 32 Year
  Sex: Female

DRUGS (1)
  1. MAKENA [Suspect]
     Active Substance: HYDROXYPROGESTERONE CAPROATE
     Dosage: 3 INJECTIONS SINCE MARCH, STRENGTH: 250MG, DOSE FORM: INJECTABLE, FREQUENCY: EVERY WEEK, ROUTE: INTRAMUSCULAR 030
     Route: 030
     Dates: start: 201503

REACTIONS (1)
  - Injection site pruritus [None]

NARRATIVE: CASE EVENT DATE: 20150316
